FAERS Safety Report 6614507-X (Version None)
Quarter: 2010Q1

REPORT INFORMATION
  Report Type: 
  Country: None (occurrence: None)
  Receive Date: 20100304
  Receipt Date: 20100216
  Transmission Date: 20100710
  Serious: Yes (Hospitalization)
  Sender: FDA-Public Use
  Company Number: ES-MERCK-1002ESP00051

PATIENT
  Age: 45 Year
  Sex: Male

DRUGS (4)
  1. ISENTRESS [Suspect]
     Indication: HIV INFECTION
     Route: 048
  2. DARUNAVIR [Suspect]
     Indication: HIV INFECTION
     Route: 048
  3. MARAVIROC [Suspect]
     Indication: HIV INFECTION
     Route: 048
  4. RITONAVIR [Suspect]
     Indication: HIV INFECTION
     Route: 048

REACTIONS (1)
  - TOXIC EPIDERMAL NECROLYSIS [None]
